FAERS Safety Report 7454983-6 (Version None)
Quarter: 2011Q2

REPORT INFORMATION
  Report Type: 
  Country: None (occurrence: None)
  Receive Date: 20110503
  Receipt Date: 20110424
  Transmission Date: 20111010
  Serious: Yes (Other)
  Sender: FDA-Public Use
  Company Number: DZ-NOVOPROD-327335

PATIENT
  Age: 13 Year
  Sex: Female

DRUGS (1)
  1. NORDITROPIN [Suspect]
     Indication: PRODUCT USED FOR UNKNOWN INDICATION
     Dosage: 17 CLICK PER DAY

REACTIONS (5)
  - MUSCULOSKELETAL STIFFNESS [None]
  - INJECTION SITE RASH [None]
  - AMAUROSIS FUGAX [None]
  - PARAESTHESIA [None]
  - INJECTION SITE PAIN [None]
